FAERS Safety Report 17760416 (Version 1)
Quarter: 2020Q2

REPORT INFORMATION
  Report Type: Spontaneous
  Country: GB (occurrence: GB)
  Receive Date: 20200508
  Receipt Date: 20200508
  Transmission Date: 20200714
  Serious: Yes (Other)
  Sender: FDA-Public Use
  Company Number: GB-ACCORD-181047

PATIENT
  Age: 57 Year
  Sex: Female
  Weight: 114 kg

DRUGS (2)
  1. OXALIPLATIN. [Suspect]
     Active Substance: OXALIPLATIN
     Indication: COLON CANCER
     Dosage: 2ND CYCLE
  2. OXALIPLATIN. [Suspect]
     Active Substance: OXALIPLATIN
     Indication: COLON CANCER
     Dosage: 3ND CYCLE
     Dates: start: 20200210, end: 20200210

REACTIONS (4)
  - Diarrhoea [Unknown]
  - Dyspnoea [Recovered/Resolved]
  - Feeling hot [Recovered/Resolved]
  - Hyperhidrosis [Recovered/Resolved]

NARRATIVE: CASE EVENT DATE: 20200210
